FAERS Safety Report 5783237-9 (Version None)
Quarter: 2008Q2

REPORT INFORMATION
  Report Type: 
  Country: None (occurrence: None)
  Receive Date: 20080605
  Receipt Date: 20080313
  Transmission Date: 20081010
  Serious: No
  Sender: FDA-Public Use
  Company Number: A0715189A

PATIENT
  Age: 53 Year
  Sex: Female

DRUGS (2)
  1. ALLI [Suspect]
  2. AVALIDE [Concomitant]

REACTIONS (1)
  - BLOOD PRESSURE INCREASED [None]
